FAERS Safety Report 5493492-0 (Version None)
Quarter: 2007Q4

REPORT INFORMATION
  Report Type: 
  Country: None (occurrence: None)
  Receive Date: 20071023
  Receipt Date: 20071011
  Transmission Date: 20080405
  Serious: Yes (Death)
  Sender: FDA-Public Use
  Company Number: US-ELI_LILLY_AND_COMPANY-US200710003292

PATIENT
  Sex: Female

DRUGS (5)
  1. BYETTA [Suspect]
     Indication: TYPE 2 DIABETES MELLITUS
     Dosage: 5 UG, 2/D
     Route: 058
     Dates: start: 20070620
  2. BYETTA [Suspect]
     Dosage: 10 UG, 2/D
     Route: 058
     Dates: start: 20070719
  3. GLUCOPHAGE [Concomitant]
     Dosage: 1000 MG, 2/D
     Route: 048
     Dates: start: 20070620
  4. AVANDIA [Concomitant]
     Dosage: UNK, UNKNOWN
     Dates: end: 20070619
  5. DIABETA [Concomitant]
     Dosage: UNK, UNKNOWN
     Dates: end: 20070619

REACTIONS (2)
  - DEATH [None]
  - NAUSEA [None]
